FAERS Safety Report 21369442 (Version 1)
Quarter: 2022Q3

REPORT INFORMATION
  Report Type: Spontaneous
  Country: US (occurrence: None)
  Receive Date: 20220922
  Receipt Date: 20220922
  Transmission Date: 20221026
  Serious: Yes (Hospitalization)
  Sender: FDA-Public Use
  Company Number: None

PATIENT
  Age: 72 Year
  Sex: Male
  Weight: 97.7 kg

DRUGS (1)
  1. AVSOLA [Suspect]
     Active Substance: INFLIXIMAB-AXXQ
     Indication: Colitis ulcerative
     Dosage: FREQUENCY : ONCE;?
     Route: 041
     Dates: start: 20220824, end: 20220824

REACTIONS (7)
  - Pruritus [None]
  - Dyspnoea [None]
  - Therapy cessation [None]
  - Musculoskeletal stiffness [None]
  - Dyskinesia [None]
  - Unresponsive to stimuli [None]
  - Anaphylactic reaction [None]

NARRATIVE: CASE EVENT DATE: 20220824
